FAERS Safety Report 11009424 (Version 1)
Quarter: 2015Q2

REPORT INFORMATION
  Report Type: Spontaneous
  Country: US (occurrence: None)
  Receive Date: 20150409
  Receipt Date: 20150409
  Transmission Date: 20150821
  Serious: No
  Sender: FDA-Public Use
  Company Number: None

PATIENT
  Age: 68 Year
  Sex: Female

DRUGS (2)
  1. NEXAVAR [Suspect]
     Active Substance: SORAFENIB
     Indication: HEPATIC CANCER
     Route: 048
     Dates: start: 20140911
  2. NEXAVAR [Suspect]
     Active Substance: SORAFENIB
     Route: 048
     Dates: start: 20140911

REACTIONS (1)
  - Skin cancer [None]

NARRATIVE: CASE EVENT DATE: 20150323
